FAERS Safety Report 8326984-7 (Version None)
Quarter: 2012Q2

REPORT INFORMATION
  Report Type: 
  Country: None (occurrence: None)
  Receive Date: 20120501
  Receipt Date: 20111108
  Transmission Date: 20120825
  Serious: No
  Sender: FDA-Public Use
  Company Number: US-SANOFI-AVENTIS-2011SA075083

PATIENT
  Age: 70 Year
  Sex: Female

DRUGS (2)
  1. SOLOSTAR [Suspect]
     Dates: start: 20111001
  2. APIDRA [Suspect]
     Dosage: DOSE: SLIDING SCALESTART DATE: 3 WEEKS AGO
     Route: 058
     Dates: start: 20111001

REACTIONS (2)
  - PRURITUS [None]
  - URTICARIA [None]
